FAERS Safety Report 6257268-9 (Version None)
Quarter: 2009Q3

REPORT INFORMATION
  Report Type: 
  Country: None (occurrence: None)
  Receive Date: 20090706
  Receipt Date: 20090630
  Transmission Date: 20100115
  Serious: Yes (Hospitalization)
  Sender: FDA-Public Use
  Company Number: US-PFIZER INC-2009224941

PATIENT
  Sex: Male
  Weight: 117.91 kg

DRUGS (28)
  1. NAPROXEN [Suspect]
     Indication: OSTEOARTHRITIS
     Dosage: UNK
     Route: 048
     Dates: start: 20090422, end: 20090531
  2. BLINDED *NO SUBJECT DRUG [Suspect]
     Indication: OSTEOARTHRITIS
     Dosage: UNK
     Route: 048
     Dates: start: 20090422, end: 20090531
  3. BLINDED *PLACEBO [Suspect]
     Indication: OSTEOARTHRITIS
     Dosage: UNK
     Route: 048
     Dates: start: 20090422, end: 20090531
  4. BLINDED CELECOXIB [Suspect]
     Indication: OSTEOARTHRITIS
     Dosage: UNK
     Route: 048
     Dates: start: 20090422, end: 20090531
  5. IBUPROFEN [Suspect]
     Indication: OSTEOARTHRITIS
     Dosage: UNK
     Route: 048
     Dates: start: 20090422, end: 20090531
  6. NAPROXEN [Suspect]
     Dosage: UNK
     Route: 048
     Dates: start: 20090422, end: 20090531
  7. ESOMEPRAZOLE [Concomitant]
     Indication: PROPHYLAXIS AGAINST GASTROINTESTINAL ULCER
     Dosage: 20 MG, 1X/DAY
     Route: 048
     Dates: start: 20090422, end: 20090531
  8. CYMBALTA [Concomitant]
     Dosage: 60 MG, 1X/DAY
     Route: 048
     Dates: start: 20080819
  9. HYDROCODONE [Concomitant]
     Dosage: 10/325 MG, AS NEEDED
     Route: 048
     Dates: start: 20090213
  10. METHOCARBAMOL [Concomitant]
     Dosage: 750 MG, 4X/DAY
     Route: 048
     Dates: start: 20080819
  11. RESTORIL [Concomitant]
     Dosage: 30 MG, AS NEEDED
     Route: 048
     Dates: start: 20041001
  12. LISINOPRIL [Concomitant]
     Dosage: 20 MG, 1X/DAY
     Route: 048
     Dates: start: 20070201
  13. PHENOBARBITAL [Concomitant]
     Dosage: 30 MG, 1X/DAY
     Route: 048
     Dates: start: 20090109
  14. NEURONTIN [Concomitant]
     Dosage: 900 MG, 1X/DAY
     Route: 048
     Dates: start: 20070101
  15. VITAMIN D3 [Concomitant]
     Dosage: 1 TAB, 1X/DAY
     Route: 048
     Dates: start: 20050101
  16. ESTER-C [Concomitant]
     Dosage: 1 TAB, 1X/DAY
     Route: 048
     Dates: start: 20050101
  17. OMEGA-3 TRIGLYCERIDES [Concomitant]
     Dosage: UNK
     Route: 048
     Dates: start: 20050101
  18. IRON [Concomitant]
     Dosage: 1 TAB, 1X/DAY
     Route: 048
     Dates: start: 20050101
  19. FIORICET [Concomitant]
     Dosage: 1CAPSULE,  PRN
     Route: 048
     Dates: start: 20050101
  20. LOMOTIL [Concomitant]
     Dosage: 1 TAB, AS NEEDED
     Route: 048
     Dates: start: 20070201
  21. PRILOSEC [Concomitant]
     Dosage: 1 TAB, AS NEEDED
     Route: 048
     Dates: start: 20080922
  22. ACETYLSALICYLIC ACID [Concomitant]
     Dosage: 81 MG, 1X/DAY
     Route: 048
     Dates: start: 20090301
  23. LYSINE [Concomitant]
     Dosage: 1 TAB, 1X/DAY
     Route: 048
     Dates: start: 20050101
  24. GABAPENTIN [Concomitant]
     Dosage: 600 MG, 3X/DAY
     Route: 048
     Dates: start: 20090213
  25. RIFAMPIN [Concomitant]
     Dosage: 300 MG, 2X/DAY
     Route: 048
     Dates: end: 20090608
  26. PROPOXYPHENE HCL AND ACETAMINOPHEN [Concomitant]
     Dosage: UNK
     Route: 048
     Dates: end: 20090531
  27. MORPHINE SULFATE [Concomitant]
     Dosage: 6 MG, 2X/DAY
     Route: 048
  28. TEMAZEPAM [Concomitant]
     Dosage: 15 MG, 1X/DAY
     Route: 048

REACTIONS (4)
  - BRONCHITIS [None]
  - MENTAL STATUS CHANGES [None]
  - PARAESTHESIA [None]
  - RENAL FAILURE ACUTE [None]
